FAERS Safety Report 13084271 (Version 1)
Quarter: 2017Q1

REPORT INFORMATION
  Report Type: Spontaneous
  Country: US (occurrence: US)
  Receive Date: 20170103
  Receipt Date: 20170103
  Transmission Date: 20170428
  Serious: Yes (Other)
  Sender: FDA-Public Use
  Company Number: None

PATIENT
  Age: 74 Year
  Sex: Female
  Weight: 58 kg

DRUGS (1)
  1. REGORAFENIB, 160 MG [Suspect]
     Active Substance: REGORAFENIB
     Indication: COLON CANCER METASTATIC
     Route: 048
     Dates: start: 20160508, end: 20160712

REACTIONS (3)
  - Toxicity to various agents [None]
  - Proteinuria [None]
  - Haematuria [None]

NARRATIVE: CASE EVENT DATE: 20160606
